FAERS Safety Report 17753501 (Version 1)
Quarter: 2020Q2

REPORT INFORMATION
  Report Type: Spontaneous
  Country: CA (occurrence: CA)
  Receive Date: 20200507
  Receipt Date: 20200507
  Transmission Date: 20200714
  Serious: Yes (Death)
  Sender: FDA-Public Use
  Company Number: CA-TEVA-2020-CA-1231696

PATIENT
  Age: 70 Year
  Sex: Male

DRUGS (21)
  1. CLONAZEPAM. [Suspect]
     Active Substance: CLONAZEPAM
     Indication: PRODUCT USED FOR UNKNOWN INDICATION
     Dosage: 1 MILLIGRAM DAILY;
     Route: 048
  2. CORDARONE [Concomitant]
     Active Substance: AMIODARONE HYDROCHLORIDE
  3. GRAVOL [Concomitant]
     Active Substance: DIMENHYDRINATE
  4. APO-CAL [Concomitant]
     Active Substance: CALCIUM CARBONATE
  5. LOSEC [Concomitant]
     Active Substance: OMEPRAZOLE
  6. CODEINE [Suspect]
     Active Substance: CODEINE
     Indication: PRODUCT USED FOR UNKNOWN INDICATION
     Route: 065
  7. ACETAMINOPHEN. [Concomitant]
     Active Substance: ACETAMINOPHEN
  8. ACETAMINOPHEN/CAFFEINE/CODEINE PHOSPHATE [Concomitant]
     Active Substance: ACETAMINOPHEN\CAFFEINE\CODEINE PHOSPHATE
  9. LIPITOR [Concomitant]
     Active Substance: ATORVASTATIN CALCIUM
  10. OXAZEPAM. [Concomitant]
     Active Substance: OXAZEPAM
  11. FLUVOXAMINE [Suspect]
     Active Substance: FLUVOXAMINE
     Indication: PRODUCT USED FOR UNKNOWN INDICATION
     Route: 065
  12. SYNTHROID [Concomitant]
     Active Substance: LEVOTHYROXINE SODIUM
     Route: 065
  13. COLACE [Concomitant]
     Active Substance: DOCUSATE SODIUM
  14. NITRO-DUR [Concomitant]
     Active Substance: NITROGLYCERIN
  15. SENOKOT [Concomitant]
     Active Substance: SENNOSIDES
  16. FENTANYL. [Suspect]
     Active Substance: FENTANYL
     Indication: PRODUCT USED FOR UNKNOWN INDICATION
     Route: 065
  17. DILAUDID [Suspect]
     Active Substance: HYDROMORPHONE HYDROCHLORIDE
     Indication: PRODUCT USED FOR UNKNOWN INDICATION
     Route: 065
  18. VIOXX [Concomitant]
     Active Substance: ROFECOXIB
     Route: 065
  19. ASA [Concomitant]
     Active Substance: ASPIRIN
  20. MOTILIUM[DOMPERIDONE] [Concomitant]
  21. FLURAZEPAM HYDROCHLORIDE. [Suspect]
     Active Substance: FLURAZEPAM HYDROCHLORIDE
     Indication: PRODUCT USED FOR UNKNOWN INDICATION
     Dosage: 30 MILLIGRAM DAILY;
     Route: 048

REACTIONS (7)
  - Disorientation [Fatal]
  - Ecchymosis [Fatal]
  - Respiratory failure [Fatal]
  - Pathological fracture [Fatal]
  - Confusional state [Fatal]
  - Fatigue [Fatal]
  - Rib fracture [Fatal]
